FAERS Safety Report 8966543 (Version 1)
Quarter: 2012Q4

REPORT INFORMATION
  Report Type: Spontaneous
  Country: DK (occurrence: None)
  Receive Date: 20121206
  Receipt Date: 20121206
  Transmission Date: 20130627
  Serious: Yes (Other)
  Sender: FDA-Public Use
  Company Number: 2012MA013813

PATIENT
  Age: 35 Year
  Sex: Female

DRUGS (6)
  1. SERTRALINE HYDROCHLORIDE [Suspect]
     Indication: DEPRESSION
     Route: 048
     Dates: start: 20120828, end: 20121014
  2. MIRTAZAPINE TABLETS [Suspect]
     Indication: DEPRESSION
     Route: 048
     Dates: start: 20120921, end: 20121021
  3. MILK THISTLE SEED [Concomitant]
  4. ECHINACEA [Concomitant]
  5. SPIRULINA [Concomitant]
  6. ANTIOXIDANTS [Concomitant]

REACTIONS (2)
  - Hepatitis [None]
  - Liver disorder [None]
